FAERS Safety Report 13884784 (Version 2)
Quarter: 2018Q1

REPORT INFORMATION
  Report Type: Report from Study
  Country: None (occurrence: DE)
  Receive Date: 20170821
  Receipt Date: 20180102
  Transmission Date: 20180508
  Serious: Yes (Hospitalization, Other)
  Sender: FDA-Public Use
  Company Number: DE-ABBVIE-17K-062-1995613-00

PATIENT
  Age: 61 Year
  Sex: Male
  Weight: 77 kg

DRUGS (7)
  1. HUMIRA [Suspect]
     Active Substance: ADALIMUMAB
     Indication: COLITIS ULCERATIVE
     Route: 058
     Dates: start: 20161206, end: 201706
  2. HUMALOG [Concomitant]
     Active Substance: INSULIN LISPRO
     Indication: PRODUCT USED FOR UNKNOWN INDICATION
     Dosage: AS REQUIRED?AT MEALS
  3. CORTISONE [Concomitant]
     Active Substance: CORTISONE\HYDROCORTISONE
     Indication: PRODUCT USED FOR UNKNOWN INDICATION
  4. CLAVERSAL [Concomitant]
     Active Substance: MESALAMINE
  5. LANTUS [Concomitant]
     Active Substance: INSULIN GLARGINE
     Indication: PRODUCT USED FOR UNKNOWN INDICATION
     Dosage: IN THE EVENING
  6. CLAVERSAL [Concomitant]
     Active Substance: MESALAMINE
     Indication: PRODUCT USED FOR UNKNOWN INDICATION
  7. HUMIRA [Suspect]
     Active Substance: ADALIMUMAB
     Route: 058
     Dates: start: 20170613, end: 20170721

REACTIONS (13)
  - Faeces discoloured [Recovering/Resolving]
  - Off label use [Unknown]
  - Chromaturia [Recovering/Resolving]
  - Cholelithiasis [Recovered/Resolved]
  - Blood glucose fluctuation [Not Recovered/Not Resolved]
  - Abdominal abscess [Recovered/Resolved]
  - Cholangiocarcinoma [Recovering/Resolving]
  - General physical health deterioration [Recovering/Resolving]
  - Gastrointestinal pain [Not Recovered/Not Resolved]
  - Colitis ulcerative [Not Recovered/Not Resolved]
  - Hypotonia [Recovering/Resolving]
  - Post procedural complication [Recovered/Resolved]
  - Conjunctival discolouration [Recovering/Resolving]

NARRATIVE: CASE EVENT DATE: 2017
